FAERS Safety Report 17266081 (Version 2)
Quarter: 2022Q1

REPORT INFORMATION
  Report Type: Report from Study
  Country: CA (occurrence: CA)
  Receive Date: 20200114
  Receipt Date: 20220127
  Transmission Date: 20220423
  Serious: Yes (Other)
  Sender: FDA-Public Use
  Company Number: CA-SA-2018SA016158

PATIENT
  Age: 45 Year
  Sex: Female

DRUGS (13)
  1. ALEMTUZUMAB [Suspect]
     Active Substance: ALEMTUZUMAB
     Indication: Relapsing-remitting multiple sclerosis
     Dosage: 12 MG,QD
     Route: 041
     Dates: start: 20180115, end: 20180117
  2. METHYLPREDNISOLONE [Concomitant]
     Active Substance: METHYLPREDNISOLONE
     Indication: Premedication
     Dosage: 1 G,UNK
     Route: 042
     Dates: start: 20180115, end: 20180117
  3. BENADRYL [Concomitant]
     Active Substance: DIPHENHYDRAMINE HYDROCHLORIDE
     Indication: Premedication
     Dosage: UNK UNK,UNK
     Route: 048
     Dates: start: 20180115, end: 20180117
  4. GRAVOL [Concomitant]
     Active Substance: DIMENHYDRINATE
     Indication: Premedication
     Dosage: 50 MG,UNK
     Route: 048
     Dates: start: 20170115, end: 20170117
  5. RANITIDINE [Concomitant]
     Active Substance: RANITIDINE
     Indication: Premedication
     Dosage: 150 MG,UNK
     Route: 048
     Dates: start: 20180115, end: 20180117
  6. CETIRIZINE HYDROCHLORIDE [Concomitant]
     Active Substance: CETIRIZINE HYDROCHLORIDE
     Indication: Premedication
     Dosage: 10 MG,UNK
     Route: 065
     Dates: start: 20180115, end: 20180117
  7. ACYCLOVIR [Concomitant]
     Active Substance: ACYCLOVIR
     Indication: Premedication
     Dosage: 200 MG,BID
     Route: 048
     Dates: start: 20180115
  8. ACETAMINOPHEN [Concomitant]
     Active Substance: ACETAMINOPHEN
     Indication: Premedication
     Dosage: UNK UNK,PRN
     Route: 048
     Dates: start: 20180115
  9. ACETAMINOPHEN [Concomitant]
     Active Substance: ACETAMINOPHEN
     Indication: Musculoskeletal discomfort
  10. VITAMIN B [Concomitant]
     Active Substance: VITAMIN B
     Dosage: UNK UNK,QD
     Route: 048
  11. VITAMIN D NOS [Concomitant]
     Active Substance: VITAMIN D NOS
     Dosage: UNK UNK, QD
     Route: 048
  12. FISH OIL [Concomitant]
     Active Substance: FISH OIL
     Dosage: UNK UNK, QD
     Route: 048
  13. VITAMINS [Concomitant]
     Active Substance: VITAMINS
     Dosage: UNK UNK, QD
     Route: 048

REACTIONS (5)
  - Immune thrombocytopenia [Recovered/Resolved]
  - Platelet count abnormal [Recovered/Resolved]
  - Musculoskeletal discomfort [Recovered/Resolved]
  - Poor quality sleep [Recovered/Resolved]
  - Blood pressure decreased [Recovered/Resolved]

NARRATIVE: CASE EVENT DATE: 20180115
